FAERS Safety Report 5755955-X (Version None)
Quarter: 2008Q2

REPORT INFORMATION
  Report Type: 
  Country: None (occurrence: None)
  Receive Date: 20080602
  Receipt Date: 20080527
  Transmission Date: 20081010
  Serious: Yes (Other)
  Sender: FDA-Public Use
  Company Number: US-ASTRAZENECA-2008UW10696

PATIENT
  Age: 49 Year
  Sex: Female
  Weight: 83.9 kg

DRUGS (3)
  1. METOPROLOL SUCCINATE [Suspect]
     Indication: PALPITATIONS
     Route: 048
     Dates: start: 20080201
  2. METOPROLOL SUCCINATE [Suspect]
     Route: 048
     Dates: end: 20080501
  3. ASPIRIN [Concomitant]

REACTIONS (3)
  - ATRIAL FIBRILLATION [None]
  - DRUG INEFFECTIVE [None]
  - FATIGUE [None]
